FAERS Safety Report 21602035 (Version 1)
Quarter: 2022Q4

REPORT INFORMATION
  Report Type: Spontaneous
  Country: NL (occurrence: NL)
  Receive Date: 20221116
  Receipt Date: 20221116
  Transmission Date: 20230112
  Serious: Yes (Death, Hospitalization, Other)
  Sender: FDA-Public Use
  Company Number: None

PATIENT
  Age: 70 Year
  Sex: Female

DRUGS (4)
  1. CAPECITABINE [Suspect]
     Active Substance: CAPECITABINE
     Indication: Rectal cancer
  2. OXALIPLATIN [Suspect]
     Active Substance: OXALIPLATIN
     Indication: Rectal cancer
  3. CAPECITABINE [Suspect]
     Active Substance: CAPECITABINE
     Indication: Chemotherapy
     Dosage: NOT REPORTED
  4. CAPECITABINE [Suspect]
     Active Substance: CAPECITABINE
     Indication: Rectal cancer
     Dosage: NOT REPORTED

REACTIONS (19)
  - Ulcer [Unknown]
  - Intestinal haemorrhage [Unknown]
  - Mucosal inflammation [Fatal]
  - Multiple organ dysfunction syndrome [Fatal]
  - Alanine aminotransferase increased [Unknown]
  - Metabolic acidosis [Unknown]
  - Renal failure [Fatal]
  - Respiratory failure [Fatal]
  - Venoocclusive liver disease [Fatal]
  - Sepsis [Fatal]
  - Thrombocytopenia [Unknown]
  - Blood bilirubin increased [Unknown]
  - Acute myocardial infarction [Unknown]
  - Gamma-glutamyltransferase increased [Unknown]
  - Myocardial infarction [Not Recovered/Not Resolved]
  - Hypokalaemia [Unknown]
  - Ascites [Unknown]
  - Hepatic failure [Fatal]
  - Aspartate aminotransferase increased [Unknown]
